FAERS Safety Report 5597212-0 (Version None)
Quarter: 2008Q1

REPORT INFORMATION
  Report Type: 
  Country: None (occurrence: None)
  Receive Date: 20080121
  Receipt Date: 20080116
  Transmission Date: 20080703
  Serious: Yes (Life-Threatening, Other)
  Sender: FDA-Public Use
  Company Number: PHHO2008FR01076

PATIENT
  Age: 55 Year
  Sex: Male

DRUGS (2)
  1. CGP 57148B [Suspect]
     Indication: ACUTE LYMPHOCYTIC LEUKAEMIA
  2. EXJADE [Concomitant]

REACTIONS (3)
  - PERITONITIS [None]
  - SEPTIC SHOCK [None]
  - SURGERY [None]
